FAERS Safety Report 4634366-4 (Version None)
Quarter: 2005Q2

REPORT INFORMATION
  Report Type: 
  Country: None (occurrence: None)
  Receive Date: 20050411
  Receipt Date: 20050329
  Transmission Date: 20051028
  Serious: Yes (Hospitalization, Congenital Anomaly)
  Sender: FDA-Public Use
  Company Number: 2005014292

PATIENT
  Sex: Male
  Weight: 3.81 kg

DRUGS (3)
  1. ALPRAZOLAM [Suspect]
     Indication: ANXIETY
     Dosage: 0.8 MG (0.8 MG, 1 IN 1 D
     Route: 064
     Dates: start: 20031230
  2. ETIZOLAM (ETIZOLAM) [Suspect]
     Indication: ANXIETY
     Dosage: 3 MG (1 MG, 3 IN 1 D)
     Route: 064
     Dates: start: 20040107
  3. MAPROTILINE HYDROCHLORIDE [Suspect]
     Indication: DEPRESSION
     Dosage: 50 MG (25 MG, 2 IN 1 D)
     Route: 064
     Dates: start: 20031230

REACTIONS (9)
  - CONGENITAL ANOMALY [None]
  - DEHYDRATION [None]
  - DRUG EXPOSURE DURING PREGNANCY [None]
  - DRUG WITHDRAWAL SYNDROME NEONATAL [None]
  - FEEDING PROBLEM IN NEWBORN [None]
  - INFECTION [None]
  - MUSCLE DISORDER [None]
  - RHABDOMYOLYSIS [None]
  - SOMNOLENCE [None]
